FAERS Safety Report 24442677 (Version 1)
Quarter: 2024Q4

REPORT INFORMATION
  Report Type: Spontaneous
  Country: US (occurrence: US)
  Receive Date: 20241016
  Receipt Date: 20241016
  Transmission Date: 20250115
  Serious: Yes (Hospitalization, Other)
  Sender: AMNEAL
  Company Number: US-AMNEAL PHARMACEUTICALS-2024-AMRX-03722

PATIENT
  Age: 30 Year
  Sex: Female

DRUGS (1)
  1. TRIAMCINOLONE ACETONIDE [Suspect]
     Active Substance: TRIAMCINOLONE ACETONIDE
     Indication: Immunoglobulin G4 related disease
     Dosage: 2 ML OF 40 MG/ML WITH A 25-GAUGE NEEDLE ON EACH SIDE
     Route: 026

REACTIONS (2)
  - Retinal artery occlusion [Recovering/Resolving]
  - Blindness [Recovering/Resolving]
